FAERS Safety Report 5030791-0 (Version None)
Quarter: 2006Q2

REPORT INFORMATION
  Report Type: 
  Country: None (occurrence: None)
  Receive Date: 20060621
  Receipt Date: 20060517
  Transmission Date: 20061013
  Serious: Yes (Hospitalization)
  Sender: FDA-Public Use
  Company Number: FR-SP-2006-01165

PATIENT
  Age: 73 Year
  Sex: Male

DRUGS (3)
  1. IMMUCYST [Suspect]
     Indication: BLADDER CANCER
     Dosage: WEEKLY
     Route: 043
     Dates: start: 20060309, end: 20060413
  2. IMMUCYST [Suspect]
     Dosage: WEEKLY
     Route: 043
     Dates: start: 20060309, end: 20060413
  3. IMMUCYST [Suspect]
     Dosage: WEEKLY
     Route: 043
     Dates: start: 20060309, end: 20060413

REACTIONS (15)
  - ANURIA [None]
  - ASTHENIA [None]
  - BOVINE TUBERCULOSIS [None]
  - C-REACTIVE PROTEIN INCREASED [None]
  - CYTOLYTIC HEPATITIS [None]
  - DYSPNOEA [None]
  - FATIGUE [None]
  - GENERAL PHYSICAL HEALTH DETERIORATION [None]
  - GRANULOMATOUS LIVER DISEASE [None]
  - HEPATIC ENZYME INCREASED [None]
  - OLIGURIA [None]
  - PULMONARY EMBOLISM [None]
  - PYREXIA [None]
  - RENAL FAILURE [None]
  - THROMBOCYTOPENIA [None]
